FAERS Safety Report 4893863-7 (Version None)
Quarter: 2006Q1

REPORT INFORMATION
  Report Type: 
  Country: None (occurrence: None)
  Receive Date: 20060127
  Receipt Date: 20041229
  Transmission Date: 20060701
  Serious: No
  Sender: FDA-Public Use
  Company Number: US-GLAXOSMITHKLINE-A0538819A

PATIENT
  Age: 42 Year
  Sex: Female

DRUGS (9)
  1. WELLBUTRIN [Suspect]
     Indication: DEPRESSION
     Dosage: 75MG AT NIGHT
     Route: 048
     Dates: start: 20041206
  2. WELLBUTRIN XL [Suspect]
     Indication: DEPRESSION
     Dosage: 150MG IN THE MORNING
     Route: 048
     Dates: start: 20041001
  3. TRAZODONE [Concomitant]
  4. MULTI-VITAMIN [Concomitant]
  5. SOY [Concomitant]
  6. CLARITIN [Concomitant]
  7. PROTONIX [Concomitant]
  8. NASACORT AQ [Concomitant]
  9. NORTRIPTYLINE HCL [Concomitant]

REACTIONS (1)
  - HEADACHE [None]
